FAERS Safety Report 5503840-0 (Version None)
Quarter: 2007Q4

REPORT INFORMATION
  Report Type: 
  Country: None (occurrence: None)
  Receive Date: 20071030
  Receipt Date: 20071015
  Transmission Date: 20080405
  Serious: Yes (Other)
  Sender: FDA-Public Use
  Company Number: 019966

PATIENT
  Age: 81 Year
  Sex: Male

DRUGS (11)
  1. WARFARIN SODIUM [Suspect]
  2. DOXYCYCLINE HYCLATE [Suspect]
     Dosage: 100 MG, BID, ORAL
     Route: 048
  3. LOTEPREDNOL ETABONATE (LOTEPREDNOL ETABONATE) [Concomitant]
  4. NIASPAN [Concomitant]
  5. ATENOLOL [Concomitant]
  6. ZESTRIL [Concomitant]
  7. IMDUR [Concomitant]
  8. PREVACID [Concomitant]
  9. PROSCAR [Concomitant]
  10. ZOCOR [Concomitant]
  11. CEFTAZIDIME [Concomitant]

REACTIONS (4)
  - COAGULATION TIME PROLONGED [None]
  - DRUG INTERACTION [None]
  - ECCHYMOSIS [None]
  - INTERNATIONAL NORMALISED RATIO INCREASED [None]
